FAERS Safety Report 7801077-3 (Version None)
Quarter: 2011Q4

REPORT INFORMATION
  Report Type: 
  Country: None (occurrence: None)
  Receive Date: 20111007
  Receipt Date: 20110927
  Transmission Date: 20120403
  Serious: No
  Sender: FDA-Public Use
  Company Number: US-BIOGENIDEC-2011BI037172

PATIENT
  Age: 49 Year
  Sex: Male

DRUGS (1)
  1. TYSABRI [Suspect]
     Indication: MULTIPLE SCLEROSIS
     Route: 042
     Dates: start: 20110912

REACTIONS (6)
  - EYELIDS PRURITUS [None]
  - DRUG INEFFECTIVE [None]
  - AURICULAR SWELLING [None]
  - SWELLING FACE [None]
  - EYELID OEDEMA [None]
  - RASH PAPULAR [None]
